FAERS Safety Report 11783863 (Version 4)
Quarter: 2016Q4

REPORT INFORMATION
  Report Type: Report from Study
  Country: None (occurrence: TR)
  Receive Date: 20151127
  Receipt Date: 20161025
  Transmission Date: 20170206
  Serious: Yes (Hospitalization)
  Sender: FDA-Public Use
  Company Number: TR-ABBVIE-15K-161-1486252-00

PATIENT
  Age: 41 Year
  Sex: Male
  Weight: 72 kg

DRUGS (5)
  1. PREDNOL [Concomitant]
     Active Substance: METHYLPREDNISOLONE
     Indication: CROHN^S DISEASE
     Route: 048
     Dates: start: 20151208, end: 201606
  2. LANSOR [Concomitant]
     Active Substance: LANSOPRAZOLE
     Indication: GASTRIC DISORDER
  3. ZINNAT VIAL [Concomitant]
     Indication: PRODUCT USED FOR UNKNOWN INDICATION
     Route: 042
     Dates: start: 20151110, end: 201606
  4. LANSOR [Concomitant]
     Active Substance: LANSOPRAZOLE
     Indication: PROPHYLAXIS
     Route: 048
     Dates: start: 20151208
  5. HUMIRA [Suspect]
     Active Substance: ADALIMUMAB
     Indication: CROHN^S DISEASE
     Route: 058
     Dates: start: 20140926, end: 20150906

REACTIONS (4)
  - Lung infection [Recovered/Resolved]
  - Haemoptysis [Recovered/Resolved]
  - Blood thyroid stimulating hormone increased [Recovered/Resolved]
  - Goitre [Recovered/Resolved]

NARRATIVE: CASE EVENT DATE: 201509
